FAERS Safety Report 8859469 (Version 1)
Quarter: 2012Q4

REPORT INFORMATION
  Report Type: Spontaneous
  Country: DK (occurrence: None)
  Receive Date: 20121023
  Receipt Date: 20121023
  Transmission Date: 20130627
  Serious: Yes (Other)
  Sender: FDA-Public Use
  Company Number: 2012MA012416

PATIENT
  Age: 87 Year
  Sex: Female

DRUGS (4)
  1. LOSARTAN POTASSIUM [Suspect]
     Indication: BLOOD PRESSURE
     Route: 048
     Dates: start: 20120923, end: 20120926
  2. ANTIASTHMATICS [Concomitant]
  3. AMIAS [Concomitant]
  4. CANDESARTAN CILEXETIL [Concomitant]

REACTIONS (3)
  - Product substitution issue [None]
  - Dysphagia [None]
  - Gastrointestinal disorder [None]
